FAERS Safety Report 6473658-3 (Version None)
Quarter: 2009Q4

REPORT INFORMATION
  Report Type: 
  Country: None (occurrence: None)
  Receive Date: 20091125
  Receipt Date: 20091118
  Transmission Date: 20100525
  Serious: Yes (Other)
  Sender: FDA-Public Use
  Company Number: 09US005184

PATIENT

DRUGS (1)
  1. DIPHENHYDRAMINE HCL [Suspect]
     Indication: DRUG USE FOR UNKNOWN INDICATION
     Dosage: 625 MG, SINGLE, ORAL
     Route: 048
     Dates: start: 20091118, end: 20091118

REACTIONS (1)
  - OVERDOSE [None]
